FAERS Safety Report 5154313-9 (Version None)
Quarter: 2006Q4

REPORT INFORMATION
  Report Type: 
  Country: None (occurrence: None)
  Receive Date: 20061114
  Receipt Date: 20061030
  Transmission Date: 20070319
  Serious: Yes (Hospitalization)
  Sender: FDA-Public Use
  Company Number: GXKR2006AU06846

PATIENT
  Age: 64 Year
  Sex: 0

DRUGS (1)
  1. VERAPAMIL [Suspect]
     Dosage: 3200 MG, ORAL
     Route: 048

REACTIONS (2)
  - ELECTROCARDIOGRAM U-WAVE ABNORMALITY [None]
  - OVERDOSE [None]
